FAERS Safety Report 11927721 (Version 4)
Quarter: 2018Q1

REPORT INFORMATION
  Report Type: Spontaneous
  Country: US (occurrence: US)
  Receive Date: 20160119
  Receipt Date: 20180315
  Transmission Date: 20180508
  Serious: Yes (Hospitalization, Other)
  Sender: FDA-Public Use
  Company Number: US-ENDO PHARMACEUTICALS INC.-2016-000355

PATIENT
  Age: 49 Year
  Sex: Male
  Weight: 112.2 kg

DRUGS (5)
  1. DELATESTRYL [Suspect]
     Active Substance: TESTOSTERONE ENANTHATE
     Indication: ANDROGEN REPLACEMENT THERAPY
     Dosage: UNK UNKNOWN, UNKNOWN
     Route: 030
     Dates: start: 2001, end: 2002
  2. ANDROGEL [Suspect]
     Active Substance: TESTOSTERONE
     Dosage: UNK UNKNOWN, UNKNOWN
     Route: 061
     Dates: start: 2010, end: 2011
  3. DEPO-TESTOSTERONE [Suspect]
     Active Substance: TESTOSTERONE CYPIONATE
     Indication: ANDROGEN REPLACEMENT THERAPY
     Dosage: UNK UNKNOWN, UNKNOWN
     Route: 065
     Dates: start: 2001
  4. ANDROGEL [Suspect]
     Active Substance: TESTOSTERONE
     Indication: ANDROGEN REPLACEMENT THERAPY
     Dosage: UNK UNKNOWN, DAILY
     Route: 061
     Dates: start: 20110221, end: 20110620
  5. TESTIM [Suspect]
     Active Substance: TESTOSTERONE
     Indication: ANDROGEN REPLACEMENT THERAPY
     Dosage: UNK UNKNOWN, DAILY
     Route: 062
     Dates: start: 20100922, end: 20110220

REACTIONS (17)
  - Angina pectoris [Unknown]
  - Myocardial infarction [Unknown]
  - Male sexual dysfunction [Not Recovered/Not Resolved]
  - Transient ischaemic attack [Unknown]
  - Cerebrovascular accident [Unknown]
  - Asthenia [Not Recovered/Not Resolved]
  - Discomfort [Not Recovered/Not Resolved]
  - Coronary artery disease [Unknown]
  - Myocardial infarction [Unknown]
  - Mental disorder [Unknown]
  - Dyspnoea [Unknown]
  - Confusional state [Unknown]
  - Myocardial infarction [Unknown]
  - Anhedonia [Not Recovered/Not Resolved]
  - Sleep apnoea syndrome [Unknown]
  - Myocardial ischaemia [Unknown]
  - Depression [Unknown]

NARRATIVE: CASE EVENT DATE: 2003
